FAERS Safety Report 6537164-X (Version None)
Quarter: 2010Q1

REPORT INFORMATION
  Report Type: 
  Country: None (occurrence: None)
  Receive Date: 20100110
  Receipt Date: 20100105
  Transmission Date: 20100710
  Serious: Yes (Other)
  Sender: FDA-Public Use
  Company Number: TPA2009A03078

PATIENT
  Age: 55 Year
  Sex: Male

DRUGS (2)
  1. ULORIC [Suspect]
     Indication: GOUT
     Dosage: 40 MG, 1 IN 1 D, PER ORAL
     Route: 048
  2. SKELAXIN [Suspect]
     Indication: DRUG USE FOR UNKNOWN INDICATION
     Dosage: PER ORAL
     Route: 048

REACTIONS (2)
  - AGGRESSION [None]
  - PSYCHOTIC DISORDER [None]
